FAERS Safety Report 9057187 (Version 1)
Quarter: 2013Q1

REPORT INFORMATION
  Report Type: Spontaneous
  Country: FR (occurrence: FR)
  Receive Date: 20130131
  Receipt Date: 20130131
  Transmission Date: 20140127
  Serious: Yes (Hospitalization)
  Sender: FDA-Public Use
  Company Number: FR-PFIZER INC-2013033021

PATIENT
  Age: 79 Year
  Sex: Female

DRUGS (4)
  1. DALACINE [Suspect]
     Indication: STAPHYLOCOCCAL INFECTION
     Dosage: 600 MG, 3X/DAY
     Route: 048
     Dates: start: 20120911, end: 20121016
  2. FUSIDIC ACID [Suspect]
     Indication: STAPHYLOCOCCAL INFECTION
     Dosage: 500 MG, 3X/DAY
     Route: 048
     Dates: start: 20120911, end: 20121016
  3. NEBIVOLOL [Concomitant]
     Indication: HYPERTENSION
  4. LOVENOX [Concomitant]
     Dosage: UNK

REACTIONS (3)
  - Agranulocytosis [Recovered/Resolved]
  - Pyrexia [Recovered/Resolved]
  - Anaemia [Recovered/Resolved]
